FAERS Safety Report 6132339-6 (Version None)
Quarter: 2009Q1

REPORT INFORMATION
  Report Type: 
  Country: None (occurrence: None)
  Receive Date: 20090325
  Receipt Date: 20090313
  Transmission Date: 20090719
  Serious: Yes (Death, Other)
  Sender: FDA-Public Use
  Company Number: 57747

PATIENT
  Age: 29 Year
  Sex: Female

DRUGS (1)
  1. EPHEDRINE SULFATE INJ. 50 MG/1ML - BEDFORD LABS, INC. [Suspect]

REACTIONS (2)
  - ARRHYTHMIA [None]
  - CARDITIS [None]
